FAERS Safety Report 7925461 (Version 2)
Quarter: 2013Q1

REPORT INFORMATION
  Report Type: Report from Study
  Country: US (occurrence: US)
  Receive Date: 20110502
  Receipt Date: 20130221
  Transmission Date: 20140127
  Serious: Yes (Hospitalization, Other)
  Sender: FDA-Public Use
  Company Number: US-ASTRAZENECA-2010SE41258

PATIENT
  Age: 60 Year
  Sex: Male
  Weight: 70.3 kg

DRUGS (30)
  1. NEXIUM [Suspect]
     Indication: GASTROOESOPHAGEAL REFLUX DISEASE
     Route: 048
     Dates: start: 2010, end: 201301
  2. NEXIUM [Suspect]
     Indication: PANCREATITIS
     Route: 048
     Dates: start: 2010, end: 201301
  3. LISINOPRIL [Suspect]
     Indication: HYPERTENSION
     Route: 048
  4. METOPROLOL [Suspect]
     Indication: HYPERTENSION
     Route: 048
  5. METOPROLOL [Suspect]
     Indication: CARDIAC FIBRILLATION
     Route: 048
  6. METOPROLOL [Suspect]
     Indication: HYPERTENSION
     Route: 048
  7. METOPROLOL [Suspect]
     Indication: CARDIAC FIBRILLATION
     Route: 048
  8. PRILOSEC [Suspect]
     Indication: GASTROOESOPHAGEAL REFLUX DISEASE
     Route: 048
     Dates: start: 2011
  9. MORPHINE [Concomitant]
  10. HYDROCODEINE [Concomitant]
  11. DEXILANT [Concomitant]
     Indication: GASTRIC DISORDER
     Route: 048
  12. PREVACID [Concomitant]
     Indication: GASTRIC DISORDER
  13. OTHER MEDICATIONS [Concomitant]
  14. VICODIN [Concomitant]
     Dosage: 500MG-5MG ONE TAD EVERY FOUR HOURS
     Route: 048
  15. LASIX [Concomitant]
     Indication: HYPERTENSION
     Route: 048
  16. SKELAXIN [Concomitant]
     Route: 048
  17. LIPRAM [Concomitant]
     Dosage: DAILY
     Route: 048
  18. ALDACTONE [Concomitant]
     Route: 048
  19. FOLIC ACID [Concomitant]
     Route: 048
  20. AMBIEN [Concomitant]
     Route: 048
  21. AMLODIPINE [Concomitant]
     Route: 048
  22. LORTAB [Concomitant]
     Dosage: 500/10 MG AS REQUIRED
     Route: 048
  23. CREON [Concomitant]
     Indication: DYSPEPSIA
     Dosage: 60000 UNITS - 12000 UNITS - 38000 UNITS  TWO CAPS ORALLY BID WITH MEALS
     Route: 048
  24. CREON [Concomitant]
     Indication: DYSPEPSIA
     Dosage: 6000 UNITS
  25. CYANOCOBALAMIN [Concomitant]
     Dosage: 1000 MCG/ML EVERY TWO WEEKY
     Route: 030
  26. POTASSIUM CHLORIDE [Concomitant]
  27. FERROUS SULFATE [Concomitant]
  28. PRENATAL VITAMIN [Concomitant]
  29. RANITIDINE [Concomitant]
     Indication: GASTRIC DISORDER
  30. PERLOCEF [Concomitant]
     Indication: GASTRIC DISORDER

REACTIONS (27)
  - Gastrointestinal haemorrhage [Unknown]
  - Gastric disorder [Unknown]
  - Pancreatitis [Unknown]
  - Anaemia [Unknown]
  - Abdominal pain upper [Unknown]
  - Abdominal pain [Unknown]
  - Peptic ulcer [Unknown]
  - Haematochezia [Unknown]
  - Fall [Unknown]
  - Rectal haemorrhage [Unknown]
  - Gastrooesophageal reflux disease [Unknown]
  - Gastritis [Unknown]
  - Chronic fatigue syndrome [Unknown]
  - Dyspepsia [Unknown]
  - Increased upper airway secretion [Unknown]
  - Weight decreased [Unknown]
  - Sleep disorder due to a general medical condition [Unknown]
  - Hypertension [Unknown]
  - Oesophagitis [Unknown]
  - Pain [Unknown]
  - Cardiac fibrillation [Unknown]
  - Aphagia [Unknown]
  - Mobility decreased [Unknown]
  - Insomnia [Unknown]
  - Intentional drug misuse [Unknown]
  - Drug ineffective [Unknown]
  - Drug dose omission [Unknown]
